FAERS Safety Report 11563279 (Version 2)
Quarter: 2015Q4

REPORT INFORMATION
  Report Type: Report from Study
  Country: US (occurrence: US)
  Receive Date: 20150928
  Receipt Date: 20151014
  Transmission Date: 20160304
  Serious: Yes (Other)
  Sender: FDA-Public Use
  Company Number: PHEH2015US017124

PATIENT
  Sex: Female
  Weight: 87.53 kg

DRUGS (1)
  1. GILENYA [Suspect]
     Active Substance: FINGOLIMOD HYDROCHLORIDE
     Indication: MULTIPLE SCLEROSIS
     Dosage: 0.5 MG, QD
     Route: 048
     Dates: start: 20150831

REACTIONS (5)
  - Memory impairment [Unknown]
  - Abdominal discomfort [Unknown]
  - Central nervous system lesion [Unknown]
  - Headache [Recovered/Resolved]
  - Flatulence [Unknown]
